FAERS Safety Report 8409659-5 (Version None)
Quarter: 2012Q2

REPORT INFORMATION
  Report Type: 
  Country: None (occurrence: None)
  Receive Date: 20120529
  Receipt Date: 20120516
  Transmission Date: 20120825
  Serious: Yes (Hospitalization, Other)
  Sender: FDA-Public Use
  Company Number: CIP11002917

PATIENT
  Age: 75 Year
  Sex: Female

DRUGS (30)
  1. SYNTHROID [Concomitant]
  2. SULFAMETHOXAZOLE AND TRIMETHOPRIM [Concomitant]
  3. MULTI-VITAMIN [Concomitant]
  4. MIACALCIN [Concomitant]
  5. CRESTOR [Concomitant]
  6. COENZYME Q10 [Concomitant]
  7. ZETIA [Concomitant]
  8. OMACOR (DOCOSAHEXAENOIC ACID, EICOSAPENTAENOIC ACID) [Concomitant]
  9. ECONAZOLE (ECONAZOLE) [Concomitant]
  10. VALTREX [Concomitant]
  11. PROMETHAZINE W/ CODEINE [Concomitant]
  12. VITAMIN D (COLECALCIFEROL) [Concomitant]
  13. DIFLORASONE (DIFLORASONE) [Concomitant]
  14. PROVACHOL (PRAVASTATIN SODIUM) [Concomitant]
  15. ACTONEL [Suspect]
     Dosage: 150 MG ONCE MONTHLY, ORAL
     Route: 048
     Dates: start: 20081201
  16. FOSAMAX [Suspect]
     Indication: OSTEOPOROSIS
     Dosage: 10 MG DAILY, ORAL 70 MG, ORAL
     Route: 048
     Dates: start: 19990901, end: 20010301
  17. FOSAMAX [Suspect]
     Indication: OSTEOPOROSIS PROPHYLAXIS
     Dosage: 10 MG DAILY, ORAL 70 MG, ORAL
     Route: 048
     Dates: start: 19990901, end: 20010301
  18. FOSAMAX [Suspect]
     Indication: OSTEOPOROSIS
     Dosage: 10 MG DAILY, ORAL 70 MG, ORAL
     Route: 048
     Dates: start: 20010401, end: 20030101
  19. FOSAMAX [Suspect]
     Indication: OSTEOPOROSIS PROPHYLAXIS
     Dosage: 10 MG DAILY, ORAL 70 MG, ORAL
     Route: 048
     Dates: start: 20010401, end: 20030101
  20. ACTONEL [Suspect]
     Dosage: 35 MG ONCE WEEKLY, ORAL
     Route: 048
     Dates: start: 20030101, end: 20080101
  21. ACTONEL [Suspect]
     Dosage: 35 MG ONCE WEEKLY, ORAL
     Route: 048
     Dates: start: 20100401
  22. AVELOX [Concomitant]
  23. CLOTRIMAZOLE W/BETAMETHASONE DIPROPIONAT (BETAMETHASONE DIPROPIONATE, [Concomitant]
  24. CALCIUM CARBONATE [Concomitant]
  25. NIASPAN [Concomitant]
  26. AMOXICILLIN [Concomitant]
  27. LOVAZA (OMEGA-2 MARINE TRIGLYCERIDES) [Concomitant]
  28. HYDROCHLOROTHIAZIDE [Concomitant]
  29. BETAMETHASONE [Concomitant]
  30. CEPHALEXIN [Concomitant]

REACTIONS (14)
  - FEMUR FRACTURE [None]
  - BONE DISORDER [None]
  - GAIT DISTURBANCE [None]
  - FALL [None]
  - FEMORAL NECK FRACTURE [None]
  - IATROGENIC INJURY [None]
  - LOW TURNOVER OSTEOPATHY [None]
  - ARTHRALGIA [None]
  - BONE MARROW OEDEMA [None]
  - STRESS FRACTURE [None]
  - FRACTURE DISPLACEMENT [None]
  - OEDEMA PERIPHERAL [None]
  - PAIN IN EXTREMITY [None]
  - GROIN PAIN [None]
